FAERS Safety Report 5381550-0 (Version None)
Quarter: 2007Q3

REPORT INFORMATION
  Report Type: 
  Country: None (occurrence: None)
  Receive Date: 20070709
  Receipt Date: 20070703
  Transmission Date: 20080115
  Serious: Yes (Hospitalization)
  Sender: FDA-Public Use
  Company Number: JP-AVENTIS-200711775JP

PATIENT
  Age: 54 Year
  Sex: Female

DRUGS (12)
  1. AMARYL [Suspect]
     Route: 048
  2. BASEN [Concomitant]
  3. AMLODIN [Concomitant]
  4. GLUCONSAN K [Concomitant]
  5. SINGULAIR [Concomitant]
  6. THEOLONG [Concomitant]
  7. NIPOLAZIN [Concomitant]
  8. PLETAL [Concomitant]
  9. MAGMITT [Concomitant]
  10. MUCOSTA [Concomitant]
  11. PRAVASTATIN SODIUM [Concomitant]
  12. MEPTIN MINITAB [Concomitant]

REACTIONS (2)
  - IDIOPATHIC THROMBOCYTOPENIC PURPURA [None]
  - PLATELET COUNT DECREASED [None]
